FAERS Safety Report 24534360 (Version 2)
Quarter: 2024Q4

REPORT INFORMATION
  Report Type: Spontaneous
  Country: US (occurrence: US)
  Receive Date: 20241022
  Receipt Date: 20241120
  Transmission Date: 20250114
  Serious: Yes (Other)
  Sender: CIPLA
  Company Number: US-CIPLA LTD.-2024US11768

PATIENT

DRUGS (1)
  1. TESTOSTERONE [Suspect]
     Active Substance: TESTOSTERONE
     Indication: Transgender hormonal therapy
     Dosage: 200 MILLIGRAM PER MILLILITRE, EVERY 2 WEEKS
     Route: 065
     Dates: start: 2009

REACTIONS (4)
  - Cerebrospinal fluid leakage [Unknown]
  - Idiopathic intracranial hypertension [Recovering/Resolving]
  - Blood testosterone increased [Unknown]
  - Blood testosterone free increased [Unknown]
